FAERS Safety Report 5026349-X (Version None)
Quarter: 2006Q2

REPORT INFORMATION
  Report Type: 
  Country: None (occurrence: None)
  Receive Date: 20060615
  Receipt Date: 20060522
  Transmission Date: 20061013
  Serious: Yes (Death, Hospitalization)
  Sender: FDA-Public Use
  Company Number: CN-BRISTOL-MYERS SQUIBB COMPANY-13384177

PATIENT
  Age: 60 Year
  Sex: Male

DRUGS (3)
  1. CAPTOPRIL [Suspect]
     Indication: HYPERTENSION
     Dosage: ON 13-FEB-2006, ADMININTERED CAPTOPRIL 6.25 MG BUCCAL SUBLINGUALLY
     Route: 048
     Dates: start: 20050501, end: 20060213
  2. FLUNARIZINE HCL [Concomitant]
  3. CHLOROTHIAZIDE [Concomitant]

REACTIONS (7)
  - CEREBROVASCULAR ACCIDENT [None]
  - CHEST DISCOMFORT [None]
  - DIZZINESS [None]
  - HEADACHE [None]
  - HYPERTENSION [None]
  - NAUSEA [None]
  - VOMITING [None]
